FAERS Safety Report 19217464 (Version 3)
Quarter: 2021Q2

REPORT INFORMATION
  Report Type: Spontaneous
  Country: US (occurrence: US)
  Receive Date: 20210505
  Receipt Date: 20210517
  Transmission Date: 20210717
  Serious: Yes (Death, Other)
  Sender: FDA-Public Use
  Company Number: US-BIOVITRUM-2021US4248

PATIENT
  Age: 10 Month
  Sex: Male

DRUGS (4)
  1. SYNAGIS [Suspect]
     Active Substance: PALIVIZUMAB
     Indication: PRODUCT USED FOR UNKNOWN INDICATION
     Dosage: 4 DOSES
     Dates: start: 20201019, end: 20210323
  2. SYNAGIS [Suspect]
     Active Substance: PALIVIZUMAB
     Dates: start: 20210129
  3. SYNAGIS [Suspect]
     Active Substance: PALIVIZUMAB
     Dates: start: 20210323
  4. SYNAGIS [Suspect]
     Active Substance: PALIVIZUMAB
     Dates: start: 20201123

REACTIONS (12)
  - Cerebral venous sinus thrombosis [Fatal]
  - Respiratory failure [Unknown]
  - Pyrexia [Unknown]
  - Cardiac arrest [Fatal]
  - Seizure [Fatal]
  - Rhinovirus infection [Unknown]
  - Status epilepticus [Unknown]
  - Pneumonia pseudomonal [Unknown]
  - Pneumonia aspiration [Unknown]
  - Klebsiella infection [Unknown]
  - Enterovirus infection [Unknown]
  - Device related thrombosis [Unknown]
